FAERS Safety Report 25790341 (Version 1)
Quarter: 2025Q3

REPORT INFORMATION
  Report Type: Spontaneous
  Country: GB (occurrence: GB)
  Receive Date: 20250911
  Receipt Date: 20250911
  Transmission Date: 20251020
  Serious: Yes (Other)
  Sender: RANBAXY
  Company Number: GB-SUN PHARMACEUTICAL INDUSTRIES LTD-2025RR-525821

PATIENT
  Sex: Male

DRUGS (1)
  1. CIPROFLOXACIN [Suspect]
     Active Substance: CIPROFLOXACIN
     Indication: Prostatic specific antigen
     Dosage: 500 MILLIGRAM, DAILY, 500MG ONCE A DAY
     Route: 065
     Dates: start: 20240829, end: 20250108

REACTIONS (5)
  - Medication error [Unknown]
  - Mental disorder [Recovered/Resolved]
  - Paraesthesia [Recovered/Resolved with Sequelae]
  - Tendonitis [Recovered/Resolved with Sequelae]
  - Tinnitus [Not Recovered/Not Resolved]
